FAERS Safety Report 9983807 (Version 2)
Quarter: 2014Q2

REPORT INFORMATION
  Report Type: Spontaneous
  Country: FR (occurrence: FR)
  Receive Date: 20140307
  Receipt Date: 20140403
  Transmission Date: 20141212
  Serious: Yes (Hospitalization)
  Sender: FDA-Public Use
  Company Number: FR-GLAXOSMITHKLINE-B0972142A

PATIENT
  Age: 85 Year
  Sex: Female

DRUGS (9)
  1. ZELITREX [Suspect]
     Indication: HERPES OPHTHALMIC
     Route: 048
     Dates: start: 20140121, end: 20140210
  2. CORDARONE [Suspect]
     Indication: ATRIAL FIBRILLATION
     Route: 048
     Dates: start: 20140202, end: 20140210
  3. CITALOPRAM HYDROBROMIDE [Suspect]
     Indication: PRODUCT USED FOR UNKNOWN INDICATION
     Route: 048
     Dates: end: 20140210
  4. EUPANTOL [Suspect]
     Indication: PRODUCT USED FOR UNKNOWN INDICATION
     Route: 048
     Dates: end: 20140210
  5. LOVENOX [Concomitant]
     Dates: start: 20140202, end: 20140203
  6. NOCTAMIDE [Concomitant]
     Route: 065
  7. ZAMUDOL [Concomitant]
     Route: 065
  8. FOSAVANCE [Concomitant]
     Route: 065
  9. KARDEGIC [Concomitant]
     Route: 065

REACTIONS (3)
  - Thrombocytopenia [Recovered/Resolved]
  - Purpura [Recovered/Resolved]
  - Rash maculo-papular [Recovered/Resolved]
